FAERS Safety Report 5812235-1 (Version None)
Quarter: 2008Q3

REPORT INFORMATION
  Report Type: 
  Country: None (occurrence: None)
  Receive Date: 20080716
  Receipt Date: 20080709
  Transmission Date: 20090109
  Serious: Yes (Hospitalization, Other)
  Sender: FDA-Public Use
  Company Number: DE-MERCK-0807DEU00017

PATIENT
  Age: 55 Year
  Sex: Female

DRUGS (6)
  1. VYTORIN [Suspect]
     Indication: HYPERLIPIDAEMIA
     Route: 048
     Dates: start: 20080130, end: 20080617
  2. ASPIRIN [Concomitant]
     Route: 065
  3. METOPROLOL SUCCINATE [Concomitant]
     Route: 065
  4. OMEPRAZOLE [Concomitant]
     Route: 065
  5. CLOPIDOGREL BISULFATE [Concomitant]
     Route: 065
  6. RAMIPRIL [Concomitant]
     Route: 065

REACTIONS (2)
  - ANGINA PECTORIS [None]
  - RHABDOMYOLYSIS [None]
